FAERS Safety Report 5060962-9 (Version None)
Quarter: 2006Q3

REPORT INFORMATION
  Report Type: 
  Country: None (occurrence: None)
  Receive Date: 20060720
  Receipt Date: 20060505
  Transmission Date: 20061208
  Serious: Yes (Other)
  Sender: FDA-Public Use
  Company Number: 200612865BWH

PATIENT
  Age: 70 Year
  Sex: Male

DRUGS (4)
  1. NEXAVAR [Suspect]
     Indication: METASTATIC RENAL CELL CARCINOMA
     Dosage: 400 MG BID ORAL ; 400 MG OM ORAL
     Route: 048
     Dates: start: 20051108, end: 20051111
  2. NEXAVAR [Suspect]
     Indication: METASTATIC RENAL CELL CARCINOMA
     Dosage: 400 MG BID ORAL ; 400 MG OM ORAL
     Route: 048
     Dates: start: 20051101, end: 20051202
  3. NEXAVAR [Suspect]
     Indication: METASTATIC RENAL CELL CARCINOMA
     Dosage: 400 MG BID ORAL ; 400 MG OM ORAL
     Route: 048
     Dates: start: 20051212, end: 20060504
  4. ATENOLOL [Concomitant]

REACTIONS (8)
  - AORTIC DISORDER [None]
  - BLISTER [None]
  - DISEASE PROGRESSION [None]
  - HYPERTENSION [None]
  - HYPOAESTHESIA [None]
  - NEOPLASM PROGRESSION [None]
  - PAIN IN EXTREMITY [None]
  - PALMAR-PLANTAR ERYTHRODYSAESTHESIA SYNDROME [None]
